FAERS Safety Report 10034220 (Version 1)
Quarter: 2014Q1

REPORT INFORMATION
  Report Type: Spontaneous
  Country: US (occurrence: None)
  Receive Date: 20140324
  Receipt Date: 20140324
  Transmission Date: 20141002
  Serious: Yes (Other)
  Sender: FDA-Public Use
  Company Number: None

PATIENT
  Age: 52 Year
  Sex: Female

DRUGS (1)
  1. HUMATROPE [Suspect]
     Indication: HYPOTHALAMO-PITUITARY DISORDER
     Dosage: 0.3MG DAILY SQ
     Route: 058
     Dates: start: 20110114

REACTIONS (5)
  - Neuropathy peripheral [None]
  - Fatigue [None]
  - Fatigue [None]
  - Cognitive disorder [None]
  - Fluid retention [None]
